FAERS Safety Report 5934863-5 (Version None)
Quarter: 2008Q4

REPORT INFORMATION
  Report Type: 
  Country: None (occurrence: None)
  Receive Date: 20081027
  Receipt Date: 20081015
  Transmission Date: 20090506
  Serious: Yes (Death)
  Sender: FDA-Public Use
  Company Number: 2008AL011260

PATIENT
  Age: 83 Year
  Sex: Male

DRUGS (8)
  1. DIGOXIN [Suspect]
     Indication: ARRHYTHMIA
     Dosage: 0.25 MG, DAILY, PO
     Route: 048
     Dates: start: 20080101, end: 20080508
  2. DIGOXIN [Suspect]
     Indication: CARDIAC FAILURE CONGESTIVE
     Dosage: 0.25 MG, DAILY, PO
     Route: 048
     Dates: start: 20080101, end: 20080508
  3. PLAVIX [Concomitant]
  4. ISOSORBIDE [Concomitant]
  5. METOPROLOL TARTRATE [Concomitant]
  6. LASIX [Concomitant]
  7. WARFARIN SODIUM [Concomitant]
  8. M.V.I. [Concomitant]

REACTIONS (9)
  - BLOOD PRESSURE DECREASED [None]
  - BRADYCARDIA [None]
  - CARDIAC FAILURE CONGESTIVE [None]
  - CARDIOACTIVE DRUG LEVEL INCREASED [None]
  - CONDITION AGGRAVATED [None]
  - DIZZINESS [None]
  - ILL-DEFINED DISORDER [None]
  - PRODUCT QUALITY ISSUE [None]
  - RENAL FAILURE [None]
